FAERS Safety Report 19962466 (Version 1)
Quarter: 2021Q4

REPORT INFORMATION
  Report Type: Spontaneous
  Country: US (occurrence: US)
  Receive Date: 20211018
  Receipt Date: 20211018
  Transmission Date: 20220303
  Serious: No
  Sender: FDA-Public Use
  Company Number: US-ORGANON-O2110USA000951

PATIENT
  Age: 22 Year
  Sex: Female
  Weight: 81.18 kg

DRUGS (4)
  1. NEXPLANON [Suspect]
     Active Substance: ETONOGESTREL
     Indication: Contraception
     Dosage: 1 IMPLANT
     Dates: start: 202008, end: 202103
  2. ILOPERIDONE [Concomitant]
     Active Substance: ILOPERIDONE
     Dosage: UNK
  3. RISPERIDONE [Concomitant]
     Active Substance: RISPERIDONE
     Dosage: UNK
  4. SERTRALINE [Concomitant]
     Active Substance: SERTRALINE HYDROCHLORIDE
     Dosage: UNK

REACTIONS (3)
  - Device issue [Unknown]
  - Complication of device removal [Unknown]
  - Encapsulation reaction [Unknown]

NARRATIVE: CASE EVENT DATE: 20210301
